APPROVED DRUG PRODUCT: SCOPOLAMINE
Active Ingredient: SCOPOLAMINE
Strength: 1MG/72HR
Dosage Form/Route: SYSTEM;TRANSDERMAL
Application: A215329 | Product #001 | TE Code: AB
Applicant: RHODES PHARMACEUTICALS LP
Approved: May 6, 2024 | RLD: No | RS: No | Type: RX